FAERS Safety Report 24732956 (Version 1)
Quarter: 2024Q4

REPORT INFORMATION
  Report Type: Spontaneous
  Country: US (occurrence: US)
  Receive Date: 20241213
  Receipt Date: 20241213
  Transmission Date: 20250114
  Serious: Yes (Other)
  Sender: PURDUE
  Company Number: US-PURDUE-USA-2024-0313974

PATIENT
  Age: 25 Year
  Sex: Female

DRUGS (2)
  1. DEXTROAMPHETAMINE SACCHARATE, AMPHETAMINE ASPARTATE, DEXTROAMPHETAMINE [Suspect]
     Active Substance: AMPHETAMINE ASPARTATE\AMPHETAMINE SULFATE\DEXTROAMPHETAMINE SACCHARATE\DEXTROAMPHETAMINE SULFATE
     Indication: Product used for unknown indication
     Dosage: UNK
     Route: 048
  2. CANNABIDIOL\HERBALS\TETRAHYDROCANNABINOL UNSPECIFIED [Suspect]
     Active Substance: CANNABIDIOL\HERBALS\TETRAHYDROCANNABINOL UNSPECIFIED
     Indication: Product used for unknown indication
     Dosage: UNK
     Route: 065

REACTIONS (6)
  - Road traffic accident [Unknown]
  - Impaired driving ability [Unknown]
  - Toxicity to various agents [Unknown]
  - Homicide [Unknown]
  - Blood alcohol increased [Unknown]
  - Drug screen positive [Unknown]

NARRATIVE: CASE EVENT DATE: 20220602
